FAERS Safety Report 7154326-1 (Version None)
Quarter: 2010Q4

REPORT INFORMATION
  Report Type: 
  Country: None (occurrence: None)
  Receive Date: 20101213
  Receipt Date: 20101202
  Transmission Date: 20110411
  Serious: Yes (Hospitalization, Other)
  Sender: FDA-Public Use
  Company Number: HR-BAYER-2010-000462

PATIENT

DRUGS (2)
  1. ASPIRIN [Suspect]
     Indication: MYOCARDIAL INFARCTION
     Route: 048
  2. CLOPIDOGREL [Suspect]

REACTIONS (3)
  - DUODENAL ULCER HAEMORRHAGE [None]
  - SUBDURAL HAEMATOMA [None]
  - VENOUS THROMBOSIS [None]
